FAERS Safety Report 13944356 (Version 4)
Quarter: 2017Q4

REPORT INFORMATION
  Report Type: Spontaneous
  Country: DE (occurrence: DE)
  Receive Date: 20170907
  Receipt Date: 20171214
  Transmission Date: 20180320
  Serious: Yes (Other)
  Sender: FDA-Public Use
  Company Number: DE-ALKABELLO-2017AA002994

PATIENT
  Age: 28 Year
  Sex: Male
  Weight: 84 kg

DRUGS (1)
  1. GRAZAX [Suspect]
     Active Substance: PHLEUM PRATENSE POLLEN
     Indication: SEASONAL ALLERGY
     Dosage: DOSE UNIT:75000 SQ-T
     Dates: start: 20170405, end: 20170424

REACTIONS (8)
  - Dysphagia [Recovered/Resolved]
  - Abdominal discomfort [Unknown]
  - Gastric ulcer [Not Recovered/Not Resolved]
  - Paraesthesia oral [Recovered/Resolved]
  - Condition aggravated [Unknown]
  - Mouth swelling [Recovered/Resolved]
  - Gastrooesophageal reflux disease [Unknown]
  - Aphthous ulcer [Recovered/Resolved]

NARRATIVE: CASE EVENT DATE: 2017
